FAERS Safety Report 9344560 (Version 2)
Quarter: 2013Q3

REPORT INFORMATION
  Report Type: Spontaneous
  Country: US (occurrence: US)
  Receive Date: 20130612
  Receipt Date: 20130701
  Transmission Date: 20140515
  Serious: No
  Sender: FDA-Public Use
  Company Number: US-PFIZER INC-2013174338

PATIENT
  Sex: Female

DRUGS (2)
  1. ADVIL [Suspect]
     Indication: ABDOMINAL PAIN UPPER
     Dosage: 200 MG, UNK
     Route: 048
  2. ADVIL [Suspect]
     Indication: DYSMENORRHOEA

REACTIONS (2)
  - Hypersensitivity [Unknown]
  - Eye swelling [Unknown]
